FAERS Safety Report 4770979-7 (Version None)
Quarter: 2005Q3

REPORT INFORMATION
  Report Type: 
  Country: None (occurrence: None)
  Receive Date: 20050914
  Receipt Date: 20050905
  Transmission Date: 20060218
  Serious: Yes (Hospitalization, Other)
  Sender: FDA-Public Use
  Company Number: 2005124881

PATIENT
  Age: 58 Year
  Sex: Male

DRUGS (6)
  1. AMLODIPINE [Suspect]
     Indication: HYPERTENSION
  2. SIMVASTATIN [Suspect]
     Indication: HYPERCHOLESTEROLAEMIA
  3. BISOPROLOL(BISOPROLOL) [Concomitant]
  4. SPIRONOLACTONE [Concomitant]
  5. RAMIPRIL [Concomitant]
  6. WARFARIN 9WARFARIN) [Concomitant]

REACTIONS (10)
  - ASTHENIA [None]
  - BACK PAIN [None]
  - C-REACTIVE PROTEIN INCREASED [None]
  - EOSINOPHILIA [None]
  - HAEMOGLOBIN DECREASED [None]
  - HYPOAESTHESIA [None]
  - HYPONATRAEMIA [None]
  - NERVOUS SYSTEM DISORDER [None]
  - RECTAL HAEMORRHAGE [None]
  - RENAL FAILURE [None]
